FAERS Safety Report 25315613 (Version 2)
Quarter: 2025Q2

REPORT INFORMATION
  Report Type: Report from Study
  Country: JP (occurrence: JP)
  Receive Date: 20250514
  Receipt Date: 20250519
  Transmission Date: 20250717
  Serious: Yes (Death, Other)
  Sender: TAKEDA
  Company Number: JP-TAKEDA-2025TJP004498

PATIENT
  Age: 47 Year
  Sex: Male
  Weight: 58.3 kg

DRUGS (12)
  1. MARIBAVIR [Suspect]
     Active Substance: MARIBAVIR
     Indication: Cytomegalovirus infection
     Dates: start: 20241004, end: 20241010
  2. LETERMOVIR [Concomitant]
     Active Substance: LETERMOVIR
     Dates: start: 20241011, end: 20241026
  3. URSODIOL [Concomitant]
     Active Substance: URSODIOL
  4. LANSOPRAZOLE [Concomitant]
     Active Substance: LANSOPRAZOLE
  5. SULFAMETHOXAZOLE\TRIMETHOPRIM [Concomitant]
     Active Substance: SULFAMETHOXAZOLE\TRIMETHOPRIM
  6. DIAMOX SEQUELS [Concomitant]
     Active Substance: ACETAZOLAMIDE
  7. MOSAPRIDE CITRATE [Concomitant]
     Active Substance: MOSAPRIDE CITRATE
  8. PREDONINE [Concomitant]
     Active Substance: PREDNISOLONE
  9. FUROSEMIDE [Concomitant]
     Active Substance: FUROSEMIDE
  10. LEVOFLOXACIN HEMIHYDRATE [Concomitant]
     Active Substance: LEVOFLOXACIN
  11. ZOVIRAX [Concomitant]
     Active Substance: ACYCLOVIR
  12. CRESEMBA [Concomitant]
     Active Substance: ISAVUCONAZONIUM SULFATE

REACTIONS (1)
  - Corynebacterium sepsis [Fatal]

NARRATIVE: CASE EVENT DATE: 20241017
